FAERS Safety Report 9253426 (Version 3)
Quarter: 2013Q4

REPORT INFORMATION
  Report Type: Spontaneous
  Country: US (occurrence: US)
  Receive Date: 20130425
  Receipt Date: 20131125
  Transmission Date: 20140711
  Serious: Yes (Hospitalization)
  Sender: FDA-Public Use
  Company Number: US-BIOGENIDEC-2013BI035489

PATIENT
  Age: 58 Year
  Sex: Female

DRUGS (4)
  1. TYSABRI [Suspect]
     Indication: MULTIPLE SCLEROSIS
     Route: 042
     Dates: start: 20121219
  2. BACLOFEN [Concomitant]
     Indication: MUSCLE RELAXANT THERAPY
  3. VALIUM [Concomitant]
     Indication: ANXIETY
  4. VALIUM [Concomitant]
     Indication: MUSCLE RELAXANT THERAPY

REACTIONS (13)
  - Accidental overdose [Recovered/Resolved]
  - Fall [Recovered/Resolved]
  - Asthenia [Unknown]
  - Influenza [Recovered/Resolved]
  - Laceration [Recovered/Resolved]
  - Motor dysfunction [Not Recovered/Not Resolved]
  - Tendonitis [Not Recovered/Not Resolved]
  - Muscle atrophy [Not Recovered/Not Resolved]
  - Stress [Not Recovered/Not Resolved]
  - Abasia [Not Recovered/Not Resolved]
  - Talipes [Not Recovered/Not Resolved]
  - Musculoskeletal stiffness [Recovered/Resolved]
  - Myalgia [Recovered/Resolved]
